FAERS Safety Report 18192225 (Version 5)
Quarter: 2021Q3

REPORT INFORMATION
  Report Type: Spontaneous
  Country: US (occurrence: US)
  Receive Date: 20200825
  Receipt Date: 20210722
  Transmission Date: 20211014
  Serious: Yes (Other)
  Sender: FDA-Public Use
  Company Number: US-PFIZER INC-2020327335

PATIENT
  Age: 58 Year
  Sex: Female

DRUGS (2)
  1. LYRICA [Suspect]
     Active Substance: PREGABALIN
     Dosage: UNK
  2. LYRICA [Suspect]
     Active Substance: PREGABALIN
     Dosage: 1 PILL INSTEAD OF 3

REACTIONS (11)
  - Cervical spinal stenosis [Unknown]
  - Nervousness [Unknown]
  - Rotator cuff syndrome [Not Recovered/Not Resolved]
  - Intervertebral disc protrusion [Unknown]
  - Thoracic spinal stenosis [Unknown]
  - Intentional product misuse [Unknown]
  - Feeling abnormal [Unknown]
  - Thinking abnormal [Unknown]
  - Head discomfort [Unknown]
  - Cervical radiculopathy [Unknown]
  - Muscle spasms [Unknown]
